FAERS Safety Report 9552166 (Version 2)
Quarter: 2013Q3

REPORT INFORMATION
  Report Type: Report from Study
  Country: MX (occurrence: MX)
  Receive Date: 20130925
  Receipt Date: 20130925
  Transmission Date: 20140515
  Serious: Yes (Hospitalization)
  Sender: FDA-Public Use
  Company Number: PHHY2011MX099780

PATIENT
  Age: 85 Year
  Sex: Male

DRUGS (3)
  1. STALEVO [Suspect]
     Indication: PARKINSON^S DISEASE
     Dosage: 3 TABLETS (200/100/25 MG) PER DAY
     Route: 048
     Dates: start: 201107
  2. STALEVO [Suspect]
     Dosage: 2 TABLETS PER DAY
     Dates: start: 201109
  3. OLMESARTAN [Concomitant]
     Dosage: 1 DF, PER DAY
     Dates: start: 2010

REACTIONS (4)
  - Diverticulum intestinal [Recovered/Resolved]
  - Nervousness [Recovered/Resolved]
  - Diarrhoea [Recovered/Resolved]
  - Insomnia [Recovered/Resolved]
